FAERS Safety Report 5263067-7 (Version None)
Quarter: 2007Q1

REPORT INFORMATION
  Report Type: 
  Country: None (occurrence: None)
  Receive Date: 20070312
  Receipt Date: 20070216
  Transmission Date: 20070707
  Serious: Yes (Other)
  Sender: FDA-Public Use
  Company Number: US-PFIZER INC-2005110070

PATIENT
  Sex: Female

DRUGS (7)
  1. BEXTRA [Suspect]
     Indication: ARTHRITIS
     Dates: start: 20020529, end: 20020917
  2. BEXTRA [Suspect]
     Indication: BACK PAIN
  3. DIFLUCAN [Concomitant]
  4. PREMARIN [Concomitant]
  5. LIBRAX [Concomitant]
  6. FLEXERIL [Concomitant]
  7. TETRACYCLINE [Concomitant]
     Dates: start: 20020917, end: 20020919

REACTIONS (1)
  - STEVENS-JOHNSON SYNDROME [None]
